FAERS Safety Report 15001123 (Version 1)
Quarter: 2018Q2

REPORT INFORMATION
  Report Type: Spontaneous
  Country: DE (occurrence: DE)
  Receive Date: 20180612
  Receipt Date: 20180612
  Transmission Date: 20180711
  Serious: Yes (Hospitalization)
  Sender: FDA-Public Use
  Company Number: DE-TEVA-2018-DE-904534

PATIENT
  Age: 66 Year
  Sex: Male

DRUGS (16)
  1. IVABRADIN [Concomitant]
     Dosage: 10 MILLIGRAM DAILY; 1-0-1-0
     Route: 048
  2. INSULIN DETEMIR [Concomitant]
     Active Substance: INSULIN DETEMIR
     Dosage: ACCORDING TO THE SCHEME
     Route: 058
  3. ISOSORBIDMONONITRAT [Concomitant]
     Active Substance: ISOSORBIDE MONONITRATE
     Dosage: 50 MILLIGRAM DAILY; 1-0-0-0
     Route: 048
  4. DAPAGLIFLOZIN. [Concomitant]
     Active Substance: DAPAGLIFLOZIN
     Dosage: 10 MILLIGRAM DAILY; 1-0-0-0
     Route: 048
  5. TILIDIN/NALOXON [Concomitant]
     Active Substance: NALOXONE HYDROCHLORIDE\TILIDINE HYDROCHLORIDE
     Dosage: 50|4 MG, 1-0-1-0
     Route: 048
  6. MAGNETRANS 375MG ULTRA [Concomitant]
     Dosage: 750 MILLIGRAM DAILY; 1-0-1-0
     Route: 048
  7. METAMIZOL [Concomitant]
     Active Substance: METAMIZOLE SODIUM
     Dosage: REQUIREMENT
     Route: 048
  8. CALCITRIOL. [Concomitant]
     Active Substance: CALCITRIOL
     Dosage: .5 MICROGRAM DAILY; 0-1-0-0
     Route: 048
  9. PREDNISOLON [Suspect]
     Active Substance: PREDNISOLONE
     Dosage: ACCORDING TO THE SCHEME
     Route: 048
  10. PANTOPRAZOL [Concomitant]
     Active Substance: PANTOPRAZOLE SODIUM
     Dosage: 40 MILLIGRAM DAILY; 1-0-0-0
     Route: 048
  11. METOPROLOL. [Concomitant]
     Active Substance: METOPROLOL
     Dosage: 95 MILLIGRAM DAILY; 1-0-1-0
     Route: 048
  12. RIVAROXABAN [Concomitant]
     Active Substance: RIVAROXABAN
     Dosage: 15 MILLIGRAM DAILY; 0-0-1-0
     Route: 048
  13. SPIRONOLACTON [Concomitant]
     Active Substance: SPIRONOLACTONE
     Dosage: 25 MILLIGRAM DAILY; 1-0-0-0
     Route: 048
  14. CANDESARTAN. [Concomitant]
     Active Substance: CANDESARTAN
     Dosage: 1-0-0.5-0
     Route: 048
  15. INSULIN ASPART [Concomitant]
     Active Substance: INSULIN ASPART
     Dosage: ACCORDING TO THE SCHEME
     Route: 058
  16. FUROSEMID [Concomitant]
     Active Substance: FUROSEMIDE
     Dosage: 50 MILLIGRAM DAILY; 1-1-0-0
     Route: 048

REACTIONS (3)
  - Gout [Unknown]
  - Pain in extremity [Unknown]
  - Hyperglycaemia [Unknown]
